FAERS Safety Report 5625843-8 (Version None)
Quarter: 2008Q1

REPORT INFORMATION
  Report Type: 
  Country: None (occurrence: None)
  Receive Date: 20080213
  Receipt Date: 20080213
  Transmission Date: 20080703
  Serious: No
  Sender: FDA-Public Use
  Company Number: None

PATIENT
  Age: 52 Month
  Sex: Female
  Weight: 68.0396 kg

DRUGS (1)
  1. CHANTIX [Suspect]
     Indication: SMOKING CESSATION THERAPY
     Dosage: 3 PILLS EVERYDAY PO
     Route: 048

REACTIONS (4)
  - FEELING ABNORMAL [None]
  - HYPERVENTILATION [None]
  - IMPAIRED DRIVING ABILITY [None]
  - PALPITATIONS [None]
